FAERS Safety Report 14846054 (Version 1)
Quarter: 2018Q2

REPORT INFORMATION
  Report Type: Spontaneous
  Country: US (occurrence: US)
  Receive Date: 20180418
  Receipt Date: 20180418
  Transmission Date: 20180711
  Serious: Yes (Hospitalization)
  Sender: FDA-Public Use
  Company Number: None

PATIENT
  Age: 73 Year
  Sex: Female

DRUGS (19)
  1. LEVOTHYROXINE SODIUM. [Concomitant]
     Active Substance: LEVOTHYROXINE SODIUM
  2. PANTOPRAZOLE SODIUM. [Concomitant]
     Active Substance: PANTOPRAZOLE SODIUM
  3. LANTUS [Concomitant]
     Active Substance: INSULIN GLARGINE
  4. MONTELUKAST SODIUM. [Concomitant]
     Active Substance: MONTELUKAST SODIUM
  5. FENTANYL CITRATE. [Concomitant]
     Active Substance: FENTANYL CITRATE
  6. PREVALITE [Concomitant]
     Active Substance: CHOLESTYRAMINE
  7. ALBUTEROL SULFATE. [Concomitant]
     Active Substance: ALBUTEROL SULFATE
  8. GABAPENTIN. [Concomitant]
     Active Substance: GABAPENTIN
  9. CHLORTHALIDONE. [Concomitant]
     Active Substance: CHLORTHALIDONE
  10. SUCRALFATE. [Concomitant]
     Active Substance: SUCRALFATE
  11. CYMBALTA [Concomitant]
     Active Substance: DULOXETINE HYDROCHLORIDE
  12. BOTOX [Suspect]
     Active Substance: ONABOTULINUMTOXINA
     Indication: MIGRAINE WITHOUT AURA
     Dosage: ?          OTHER FREQUENCY:INJECT 155 UNITS I;?
     Route: 030
     Dates: start: 20161130, end: 20171026
  13. LIPITOR [Concomitant]
     Active Substance: ATORVASTATIN CALCIUM
  14. AUGMENTIN [Concomitant]
     Active Substance: AMOXICILLIN\CLAVULANATE POTASSIUM
  15. LEXAPRO [Concomitant]
     Active Substance: ESCITALOPRAM OXALATE
  16. FLUTICASONE PROPIONATE. [Concomitant]
     Active Substance: FLUTICASONE PROPIONATE
  17. IPRATROPIUM BROMIDE. [Concomitant]
     Active Substance: IPRATROPIUM BROMIDE
  18. MUPIROCIN. [Concomitant]
     Active Substance: MUPIROCIN
  19. RANITIDINE HCL [Concomitant]
     Active Substance: RANITIDINE HYDROCHLORIDE

REACTIONS (2)
  - Hypertension [None]
  - Drug dose omission [None]

NARRATIVE: CASE EVENT DATE: 20180418
